FAERS Safety Report 25573159 (Version 6)
Quarter: 2025Q3

REPORT INFORMATION
  Report Type: Report from Study
  Country: EU (occurrence: EU)
  Receive Date: 20250717
  Receipt Date: 20250815
  Transmission Date: 20251020
  Serious: Yes (Hospitalization)
  Sender: ABBVIE
  Company Number: EU-ABBVIE-6368485

PATIENT
  Age: 70 Year
  Sex: Female
  Weight: 85 kg

DRUGS (1)
  1. FOSCARBIDOPA\FOSLEVODOPA [Suspect]
     Active Substance: FOSCARBIDOPA\FOSLEVODOPA
     Indication: Parkinson^s disease
     Dosage: BASE SPEED 0.30 ML/HR
     Route: 058
     Dates: start: 20250317

REACTIONS (6)
  - Nervousness [Recovered/Resolved]
  - Headache [Not Recovered/Not Resolved]
  - Dyskinesia [Recovered/Resolved]
  - Pulmonary embolism [Recovered/Resolved]
  - Chest pain [Not Recovered/Not Resolved]
  - Anxiety [Unknown]

NARRATIVE: CASE EVENT DATE: 20250101
